FAERS Safety Report 15296425 (Version 1)
Quarter: 2018Q3

REPORT INFORMATION
  Report Type: Spontaneous
  Country: NL (occurrence: NL)
  Receive Date: 20180820
  Receipt Date: 20180820
  Transmission Date: 20181010
  Serious: Yes (Other)
  Sender: FDA-Public Use
  Company Number: NL-TEVA-2018-NL-944052

PATIENT
  Age: 38 Year
  Sex: Female
  Weight: 55 kg

DRUGS (3)
  1. QUETIAPINE. [Suspect]
     Active Substance: QUETIAPINE
     Indication: POST-TRAUMATIC STRESS DISORDER
     Dosage: 25 MILLIGRAM DAILY; 25 MG PER DAY
     Route: 065
     Dates: start: 20180329, end: 20180706
  2. QUETIAPINE. [Suspect]
     Active Substance: QUETIAPINE
     Indication: SLEEP DISORDER
  3. TRAZOLAN 50MG [Concomitant]
     Dosage: 50 MILLIGRAM DAILY; 50MG/DAY
     Route: 065

REACTIONS (4)
  - Dissociation [Recovering/Resolving]
  - Intentional self-injury [Recovering/Resolving]
  - Abnormal dreams [Recovering/Resolving]
  - Decreased interest [Recovering/Resolving]
